FAERS Safety Report 16135541 (Version 7)
Quarter: 2019Q3

REPORT INFORMATION
  Report Type: Report from Study
  Country: US (occurrence: US)
  Receive Date: 20190329
  Receipt Date: 20190723
  Transmission Date: 20191004
  Serious: Yes (Other)
  Sender: FDA-Public Use
  Company Number: US-MALLINCKRODT-T201902385

PATIENT
  Age: 27 Year
  Sex: Female

DRUGS (7)
  1. REPOSITORY CORTICOTROPIN INJECTION [Suspect]
     Active Substance: CORTICOTROPIN
     Dosage: 20 UNITS / 0.25 ML 3 TIMES A WEEK(MONDAY/WEDNESDAY/FRIDAY)
     Route: 030
     Dates: start: 20190426, end: 2019
  2. REPOSITORY CORTICOTROPIN INJECTION [Suspect]
     Active Substance: CORTICOTROPIN
     Dosage: 40 UNITS / 0.5 ML 3 TIMES A WEEK(MONDAY/WEDNESDAY/FRIDAY)
     Route: 030
     Dates: start: 2019, end: 201904
  3. PREDNISONE. [Suspect]
     Active Substance: PREDNISONE
     Indication: SYSTEMIC LUPUS ERYTHEMATOSUS
     Dosage: UNK
     Route: 065
  4. REPOSITORY CORTICOTROPIN INJECTION [Suspect]
     Active Substance: CORTICOTROPIN
     Indication: SYSTEMIC LUPUS ERYTHEMATOSUS
     Dosage: 80 UNITS / 1 ML 2 TIMES PER WEEK MON/FRI
     Route: 030
     Dates: start: 20190304, end: 201903
  5. REPOSITORY CORTICOTROPIN INJECTION [Suspect]
     Active Substance: CORTICOTROPIN
     Dosage: 80 UNITS / 1 ML 3 TIMES A WEEK(MONDAY/WEDNESDAY/FRIDAY)
     Route: 030
     Dates: start: 201903, end: 2019
  6. REPOSITORY CORTICOTROPIN INJECTION [Suspect]
     Active Substance: CORTICOTROPIN
     Dosage: 80 UNITS / 1 ML 3 TIMES A WEEK(MONDAY/WEDNESDAY/FRIDAY)
     Route: 030
     Dates: start: 2019, end: 2019
  7. CELLCEPT [Concomitant]
     Active Substance: MYCOPHENOLATE MOFETIL\MYCOPHENOLATE MOFETIL HYDROCHLORIDE
     Indication: PRODUCT USED FOR UNKNOWN INDICATION
     Dosage: UNK
     Route: 065

REACTIONS (25)
  - Systemic lupus erythematosus [Not Recovered/Not Resolved]
  - Nausea [Recovering/Resolving]
  - Insomnia [Not Recovered/Not Resolved]
  - Frustration tolerance decreased [Unknown]
  - Emotional distress [Unknown]
  - Feeling abnormal [Not Recovered/Not Resolved]
  - Seizure [Not Recovered/Not Resolved]
  - C-reactive protein increased [Unknown]
  - Postural orthostatic tachycardia syndrome [Not Recovered/Not Resolved]
  - Fatigue [Recovering/Resolving]
  - Cognitive disorder [Unknown]
  - Platelet count increased [Unknown]
  - Myelopathy [Not Recovered/Not Resolved]
  - Chest pain [Unknown]
  - Appetite disorder [Not Recovered/Not Resolved]
  - Prescription drug used without a prescription [Not Recovered/Not Resolved]
  - Lethargy [Not Recovered/Not Resolved]
  - White blood cell count increased [Unknown]
  - Condition aggravated [Not Recovered/Not Resolved]
  - Nervous system disorder [Unknown]
  - Pain [Recovering/Resolving]
  - Weight increased [Unknown]
  - Loss of consciousness [Not Recovered/Not Resolved]
  - Memory impairment [Unknown]
  - Drug ineffective [Not Recovered/Not Resolved]

NARRATIVE: CASE EVENT DATE: 201903
